FAERS Safety Report 11392648 (Version 2)
Quarter: 2015Q4

REPORT INFORMATION
  Report Type: Spontaneous
  Country: US (occurrence: US)
  Receive Date: 20150818
  Receipt Date: 20151001
  Transmission Date: 20160304
  Serious: Yes (Other)
  Sender: FDA-Public Use
  Company Number: US-PFIZER INC-2015260808

PATIENT
  Age: 81 Year
  Sex: Male
  Weight: 73 kg

DRUGS (12)
  1. PAZOPANIB [Concomitant]
     Active Substance: PAZOPANIB
     Indication: METASTATIC RENAL CELL CARCINOMA
     Dosage: UNK
  2. ISOSORBIDE MONONITRATE. [Concomitant]
     Active Substance: ISOSORBIDE MONONITRATE
     Dosage: 120 MG, DAILY, EXTENDED RELEASE 24 HOUR TABLET
     Route: 048
  3. SIMVASTATIN. [Concomitant]
     Active Substance: SIMVASTATIN
     Dosage: 10 MG, UNK (NIGHTLY AT BEDTIME)
     Route: 048
  4. ASPIRIN. [Concomitant]
     Active Substance: ASPIRIN
     Dosage: 325 MG, DAILY
     Route: 048
  5. NPH INSULIN [Concomitant]
     Active Substance: INSULIN BEEF
     Dosage: UNK (100?/ML SOLUTION (USE AS DIRECTED)
  6. PRILOSEC [Concomitant]
     Active Substance: OMEPRAZOLE MAGNESIUM
     Dosage: 40 MG, 2X/DAY
     Route: 048
  7. NITROSTAT [Concomitant]
     Active Substance: NITROGLYCERIN
     Indication: CHEST PAIN
     Dosage: 0.4 MG, AS NEEDED (EVERY 5 MINUTES UP TO 3 DOSES)
     Route: 060
  8. SUTENT [Suspect]
     Active Substance: SUNITINIB MALATE
     Dosage: 50 MG, CYCLIC (2 WEEKS ON AND ONE WEEK OFF)
  9. TERAZOSIN HCL [Concomitant]
     Active Substance: TERAZOSIN HYDROCHLORIDE
     Dosage: 5 MG, UNK (AT BEDTIME NIGHTLY)
     Route: 048
  10. CARVEDILOL. [Concomitant]
     Active Substance: CARVEDILOL
     Dosage: 25 MG, 2X/DAY
     Route: 048
  11. PLAVIX [Concomitant]
     Active Substance: CLOPIDOGREL BISULFATE
     Dosage: 75 MG, DAILY
     Route: 048
  12. SUTENT [Suspect]
     Active Substance: SUNITINIB MALATE
     Indication: METASTATIC RENAL CELL CARCINOMA
     Dosage: 50 MG, CYCLIC (DAILY FOR 4 WEEKS, THEN OFF 2 WEEKS)
     Route: 048
     Dates: start: 201506

REACTIONS (17)
  - Chills [Recovered/Resolved]
  - Osteoarthritis [Unknown]
  - Tremor [Recovered/Resolved]
  - Gastrooesophageal reflux disease [Unknown]
  - Gastrointestinal infection [Unknown]
  - Thrombocytopenia [Unknown]
  - Hyperkalaemia [Unknown]
  - Angina pectoris [Recovered/Resolved]
  - Nausea [Recovered/Resolved]
  - Blood creatinine increased [Unknown]
  - Vomiting [Recovered/Resolved]
  - Bone marrow failure [Not Recovered/Not Resolved]
  - Fatigue [Not Recovered/Not Resolved]
  - Weight decreased [Not Recovered/Not Resolved]
  - Malaise [Unknown]
  - Hypophagia [Unknown]
  - Retching [Unknown]
